FAERS Safety Report 16686882 (Version 3)
Quarter: 2020Q3

REPORT INFORMATION
  Report Type: Spontaneous
  Country: US (occurrence: US)
  Receive Date: 20190809
  Receipt Date: 20200715
  Transmission Date: 20201102
  Serious: Yes (Other)
  Sender: FDA-Public Use
  Company Number: US-BAYER-2019-148384

PATIENT
  Age: 22 Year
  Sex: Female
  Weight: 82 kg

DRUGS (1)
  1. SKYLA [Suspect]
     Active Substance: LEVONORGESTREL
     Indication: CONTRACEPTION
     Dosage: 14 MCG/24HR, CONT
     Route: 015
     Dates: start: 20180620, end: 20190809

REACTIONS (2)
  - Abdominal pain lower [None]
  - Genital haemorrhage [None]

NARRATIVE: CASE EVENT DATE: 20190809
